FAERS Safety Report 21175369 (Version 6)
Quarter: 2022Q3

REPORT INFORMATION
  Report Type: Report from Study
  Country: IL (occurrence: IL)
  Receive Date: 20220805
  Receipt Date: 20220825
  Transmission Date: 20221027
  Serious: Yes (Hospitalization)
  Sender: FDA-Public Use
  Company Number: IL-ABBVIE-22K-082-4493264-00

PATIENT
  Sex: Male

DRUGS (2)
  1. CARBIDOPA\LEVODOPA [Suspect]
     Active Substance: CARBIDOPA\LEVODOPA
     Indication: Parkinson^s disease
     Route: 050
     Dates: start: 20220301, end: 2022
  2. CARBIDOPA\LEVODOPA [Suspect]
     Active Substance: CARBIDOPA\LEVODOPA
     Dosage: MORNING DOSE 15.5ML , CONTINUOUS DOSE 3.9ML/HR , EXTRA DOSE 1.7ML PER DOSE
     Route: 050
     Dates: start: 2022

REACTIONS (5)
  - Bacteraemia [Unknown]
  - Pneumonia aspiration [Unknown]
  - Asthenia [Unknown]
  - On and off phenomenon [Recovering/Resolving]
  - Abdominal pain [Unknown]

NARRATIVE: CASE EVENT DATE: 20220101
